FAERS Safety Report 5936884-5 (Version None)
Quarter: 2008Q4

REPORT INFORMATION
  Report Type: 
  Country: None (occurrence: None)
  Receive Date: 20081031
  Receipt Date: 20081023
  Transmission Date: 20090506
  Serious: Yes (Hospitalization)
  Sender: FDA-Public Use
  Company Number: ES-JNJFOC-20081006353

PATIENT
  Age: 92 Year
  Sex: Female

DRUGS (1)
  1. RISPERDAL [Suspect]
     Indication: ABNORMAL BEHAVIOUR
     Route: 048

REACTIONS (1)
  - LOSS OF CONSCIOUSNESS [None]
